FAERS Safety Report 8488058-4 (Version None)
Quarter: 2012Q3

REPORT INFORMATION
  Report Type: 
  Country: None (occurrence: None)
  Receive Date: 20120705
  Receipt Date: 20120625
  Transmission Date: 20120928
  Serious: Yes (Other)
  Sender: FDA-Public Use
  Company Number: BR-BRISTOL-MYERS SQUIBB COMPANY-16714701

PATIENT
  Age: 53 Year
  Sex: Female
  Weight: 76 kg

DRUGS (9)
  1. FUROSEMIDE [Concomitant]
     Route: 048
  2. CLONAZEPAM [Concomitant]
     Indication: DEPRESSION
     Dosage: 1DF = 1 TAB
     Route: 048
     Dates: start: 20050101
  3. IRBESARTAN AND HYDROCHLOROTHIAZIDE [Suspect]
     Indication: HYPERTENSION
     Dosage: 1DF = 1 TAB STRENGTH:APROZIDE 150MG TABLET
     Route: 048
     Dates: start: 20040101
  4. GLYBURIDE [Concomitant]
     Indication: DIABETES MELLITUS
     Dosage: 1DF =1 TAB
     Route: 048
     Dates: start: 20070101
  5. CARMELLOSE SODIUM [Concomitant]
     Route: 047
     Dates: start: 20080101
  6. METFORMIN HCL [Concomitant]
     Indication: DIABETES MELLITUS
     Dosage: 1DF = 2 TABS
     Route: 048
     Dates: start: 20070101
  7. OCUPRESS [Concomitant]
     Indication: GLAUCOMA
     Route: 047
     Dates: start: 20080101
  8. XALCOM [Concomitant]
     Indication: GLAUCOMA
     Route: 047
     Dates: start: 20080101
  9. ATENOLOL [Concomitant]
     Indication: HYPERTENSION
     Dosage: 1DF = 4 TABS
     Route: 048

REACTIONS (2)
  - CONJUNCTIVAL PIGMENTATION [None]
  - DIABETES MELLITUS [None]
